FAERS Safety Report 4463733-7 (Version None)
Quarter: 2004Q4

REPORT INFORMATION
  Report Type: 
  Country: None (occurrence: None)
  Receive Date: 20041001
  Receipt Date: 20040924
  Transmission Date: 20050328
  Serious: Yes (Hospitalization)
  Sender: FDA-Public Use
  Company Number: US-BRISTOL-MYERS SQUIBB COMPANY-12711727

PATIENT
  Age: 35 Year
  Sex: Male

DRUGS (11)
  1. EFAVIRENZ [Suspect]
     Indication: HIV INFECTION
     Dates: start: 20040305, end: 20040827
  2. TENOFOVIR [Suspect]
     Indication: HIV INFECTION
     Dates: start: 20040305, end: 20040719
  3. LAMIVUDINE [Suspect]
     Indication: HIV INFECTION
     Dates: start: 20040305, end: 20040719
  4. COMBIVIR [Suspect]
     Dates: start: 20040701
  5. TRAZODONE HCL [Concomitant]
  6. DIGOXIN [Concomitant]
  7. ENALAPRIL MALEATE [Concomitant]
  8. METOPROLOL [Concomitant]
  9. WARFARIN SODIUM [Concomitant]
  10. ZOLPIDEM TARTRATE [Concomitant]
  11. FLUOXETINE [Concomitant]

REACTIONS (3)
  - CARDIAC FAILURE CONGESTIVE [None]
  - CARDIOMYOPATHY [None]
  - TREATMENT NONCOMPLIANCE [None]
